FAERS Safety Report 4268723-5 (Version None)
Quarter: 2004Q1

REPORT INFORMATION
  Report Type: 
  Country: None (occurrence: None)
  Receive Date: 20040112
  Receipt Date: 20031113
  Transmission Date: 20041129
  Serious: Yes (Death, Other)
  Sender: FDA-Public Use
  Company Number: PHEH2003US10476

PATIENT
  Age: 78 Year
  Sex: Female
  Weight: 83 kg

DRUGS (9)
  1. ZELNORM [Suspect]
     Indication: CONSTIPATION
     Dosage: 6 MG, BID
     Route: 048
     Dates: start: 20031026
  2. OXYCONTIN [Suspect]
     Indication: PAIN
     Dosage: 20 MG, BID
     Route: 048
     Dates: start: 20031026
  3. LOTENSIN HCT [Concomitant]
     Indication: HYPERTENSION
  4. NEURONTIN [Concomitant]
     Indication: PAIN
  5. CARDURA [Concomitant]
     Indication: HYPERTENSION
  6. COLACE [Concomitant]
  7. METAMUCIL ^PROCTER + GAMBLE^ [Concomitant]
  8. HYDROCODONE W/ACETAMINOPHEN [Concomitant]
     Indication: PAIN
     Dosage: UNK, PRN
  9. OXYBUTYNIN [Concomitant]
     Indication: URINARY INCONTINENCE
     Dosage: 2.5 MG, BID

REACTIONS (4)
  - COMPLETED SUICIDE [None]
  - DEPRESSION [None]
  - GUN SHOT WOUND [None]
  - HEAD INJURY [None]
